FAERS Safety Report 15269798 (Version 1)
Quarter: 2018Q3

REPORT INFORMATION
  Report Type: Spontaneous
  Country: US (occurrence: US)
  Receive Date: 20180813
  Receipt Date: 20180813
  Transmission Date: 20181010
  Serious: No
  Sender: FDA-Public Use
  Company Number: US-SHIRE-US201831160

PATIENT
  Age: 53 Year

DRUGS (1)
  1. NATPARA (PARATHYROID HORMONE) [Suspect]
     Active Substance: PARATHYROID HORMONE
     Indication: BLOOD CALCIUM DECREASED
     Dosage: 100 ?G, 1X/DAY:QD
     Route: 065

REACTIONS (2)
  - Musculoskeletal stiffness [Unknown]
  - Device leakage [Unknown]
